FAERS Safety Report 7396189-5 (Version None)
Quarter: 2011Q2

REPORT INFORMATION
  Report Type: 
  Country: None (occurrence: None)
  Receive Date: 20110406
  Receipt Date: 20110324
  Transmission Date: 20111010
  Serious: Yes (Hospitalization)
  Sender: FDA-Public Use
  Company Number: US-ELI_LILLY_AND_COMPANY-US200909001593

PATIENT
  Sex: Female

DRUGS (10)
  1. FORTEO [Suspect]
     Indication: OSTEOPOROSIS
     Dosage: 20 UG, DAILY (1/D)
     Route: 065
     Dates: start: 20090812
  2. NEXIUM [Concomitant]
  3. GABAPENTIN [Concomitant]
     Dosage: 300 MG, 2/D
  4. OXYCONTIN [Concomitant]
     Dosage: UNK, 2/D
  5. VITAMINS NOS [Concomitant]
  6. LYRICA [Concomitant]
  7. FORTEO [Suspect]
     Dosage: 20 UG, DAILY (1/D)
     Route: 065
  8. FORTEO [Suspect]
     Dosage: 20 UG, DAILY (1/D)
     Route: 065
  9. FORTEO [Suspect]
     Dosage: 20 UG, QD
  10. LASIX [Concomitant]

REACTIONS (13)
  - JOINT ADHESION [None]
  - VISUAL ACUITY REDUCED [None]
  - SINUSITIS [None]
  - ARTHROPATHY [None]
  - FOREIGN BODY SENSATION IN EYES [None]
  - EYELID FUNCTION DISORDER [None]
  - VIITH NERVE PARALYSIS [None]
  - PAIN IN EXTREMITY [None]
  - WEIGHT INCREASED [None]
  - MUSCULAR WEAKNESS [None]
  - ARTHRALGIA [None]
  - FATIGUE [None]
  - OEDEMA PERIPHERAL [None]
